FAERS Safety Report 15080959 (Version 1)
Quarter: 2018Q2

REPORT INFORMATION
  Report Type: Spontaneous
  Country: NL (occurrence: NL)
  Receive Date: 20180628
  Receipt Date: 20180628
  Transmission Date: 20180711
  Serious: Yes (Other)
  Sender: FDA-Public Use
  Company Number: NL-HORIZON-PRE-0275-2018

PATIENT
  Age: 24 Year

DRUGS (7)
  1. SIMAVASTIN [Concomitant]
     Route: 065
  2. CORTIM [Concomitant]
     Route: 065
  3. PREDNISONE. [Suspect]
     Active Substance: PREDNISONE
     Indication: LUPUS NEPHRITIS
     Dosage: 15 MG DAILY
     Route: 065
     Dates: start: 20180209
  4. CELLCEPT [Suspect]
     Active Substance: MYCOPHENOLATE MOFETIL\MYCOPHENOLATE MOFETIL HYDROCHLORIDE
     Indication: LUPUS NEPHRITIS
     Route: 065
     Dates: start: 20180209, end: 20180310
  5. CYCLOPHOSPHAMIDE. [Concomitant]
     Active Substance: CYCLOPHOSPHAMIDE
  6. LISINOPRIL. [Concomitant]
     Active Substance: LISINOPRIL
     Route: 065
  7. LISINOPRIL. [Concomitant]
     Active Substance: LISINOPRIL
     Route: 065

REACTIONS (5)
  - Pyrexia [Unknown]
  - Nausea [Unknown]
  - Pneumonia [Unknown]
  - Constipation [Unknown]
  - Cough [Unknown]

NARRATIVE: CASE EVENT DATE: 20180219
